FAERS Safety Report 23943760 (Version 2)
Quarter: 2024Q2

REPORT INFORMATION
  Report Type: Spontaneous
  Country: US (occurrence: US)
  Receive Date: 20240606
  Receipt Date: 20240614
  Transmission Date: 20240716
  Serious: No
  Sender: FDA-Public Use
  Company Number: US-OPELLA-2024OHG019311

PATIENT
  Sex: Male

DRUGS (2)
  1. ALLEGRA ALLERGY [Suspect]
     Active Substance: FEXOFENADINE HYDROCHLORIDE
     Indication: Product used for unknown indication
     Route: 065
  2. ALLEGRA ALLERGY [Suspect]
     Active Substance: FEXOFENADINE HYDROCHLORIDE
     Route: 065
     Dates: start: 202405

REACTIONS (9)
  - Abdominal discomfort [Unknown]
  - Dry mouth [Unknown]
  - Headache [Unknown]
  - Heart rate increased [Unknown]
  - Diarrhoea [Unknown]
  - Body temperature abnormal [Unknown]
  - Tinnitus [Unknown]
  - Photophobia [Unknown]
  - Intentional product use issue [Unknown]
